FAERS Safety Report 18713095 (Version 1)
Quarter: 2021Q1

REPORT INFORMATION
  Report Type: Spontaneous
  Country: US (occurrence: US)
  Receive Date: 20210107
  Receipt Date: 20210107
  Transmission Date: 20210419
  Serious: Yes (Death, Hospitalization)
  Sender: FDA-Public Use
  Company Number: US-BAYER-2021-000306

PATIENT
  Age: 47 Year
  Sex: Female

DRUGS (6)
  1. BUPROPION. [Suspect]
     Active Substance: BUPROPION
  2. CYCLOBENZAPRINE. [Suspect]
     Active Substance: CYCLOBENZAPRINE
  3. ALCOHOL. [Suspect]
     Active Substance: ALCOHOL
  4. FLUOXETINE [Suspect]
     Active Substance: FLUOXETINE HYDROCHLORIDE
  5. TRAMADOL. [Suspect]
     Active Substance: TRAMADOL
  6. PARACETAMOL [Suspect]
     Active Substance: ACETAMINOPHEN
     Route: 048

REACTIONS (1)
  - Toxicity to various agents [Fatal]
